FAERS Safety Report 6504802-7 (Version None)
Quarter: 2009Q4

REPORT INFORMATION
  Report Type: 
  Country: None (occurrence: None)
  Receive Date: 20091216
  Receipt Date: 20091204
  Transmission Date: 20100525
  Serious: Yes (Disabling, Other)
  Sender: FDA-Public Use
  Company Number: ADR40942009 (ARROW GENERICS REF NO.: 2009AG2278)

PATIENT
  Age: 64 Year
  Sex: Male

DRUGS (5)
  1. SIMVASTATIN [Suspect]
     Indication: BLOOD CHOLESTEROL INCREASED
     Dosage: 20 MG ORAL
     Route: 048
  2. PRAVASTATIN [Suspect]
     Dosage: 40 MG ORAL
     Route: 048
     Dates: end: 20090801
  3. CIALIS [Concomitant]
  4. ATORVASTATIN CALCIUM [Concomitant]
  5. ROSUVASTATIN [Concomitant]

REACTIONS (9)
  - BLOOD PRESSURE INCREASED [None]
  - DIZZINESS [None]
  - FATIGUE [None]
  - HYPERHIDROSIS [None]
  - INFLUENZA LIKE ILLNESS [None]
  - MALAISE [None]
  - MUSCULOSKELETAL STIFFNESS [None]
  - MYALGIA [None]
  - NAUSEA [None]
